FAERS Safety Report 7420589-8 (Version None)
Quarter: 2011Q2

REPORT INFORMATION
  Report Type: 
  Country: None (occurrence: None)
  Receive Date: 20110418
  Receipt Date: 20110412
  Transmission Date: 20111010
  Serious: Yes (Life-Threatening)
  Sender: FDA-Public Use
  Company Number: JP-ASTRAZENECA-2011SE21195

PATIENT
  Age: 59 Year
  Sex: Female

DRUGS (2)
  1. DIPRIVAN [Suspect]
     Route: 041
     Dates: start: 20110411, end: 20110411
  2. XYLOCAINE [Suspect]
     Route: 041
     Dates: start: 20110411, end: 20110411

REACTIONS (2)
  - SHOCK [None]
  - BLOOD PRESSURE DECREASED [None]
